FAERS Safety Report 7383308-X (Version None)
Quarter: 2011Q1

REPORT INFORMATION
  Report Type: 
  Country: None (occurrence: None)
  Receive Date: 20110324
  Receipt Date: 20110324
  Transmission Date: 20110831
  Serious: Yes (Hospitalization)
  Sender: FDA-Public Use
  Company Number: None

PATIENT
  Age: 84 Year
  Sex: Female

DRUGS (7)
  1. ASPIRIN [Concomitant]
  2. ARICEPT [Concomitant]
  3. SIMVASTATIN [Concomitant]
  4. SULFAMETHOXAZOLE AND TRIMETHOPRIM [Concomitant]
  5. GLIPIZIDE [Suspect]
     Indication: DIABETES MELLITUS
     Dosage: 1.25MG BID PO LONG TERM
     Route: 048
  6. SINEMET [Concomitant]
  7. CITALOPRAM [Concomitant]

REACTIONS (4)
  - HYPONATRAEMIA [None]
  - FALL [None]
  - HYPOPHAGIA [None]
  - BLOOD GLUCOSE DECREASED [None]
